FAERS Safety Report 14996917 (Version 2)
Quarter: 2018Q2

REPORT INFORMATION
  Report Type: Spontaneous
  Country: US (occurrence: US)
  Receive Date: 20180611
  Receipt Date: 20180614
  Transmission Date: 20180711
  Serious: Yes (Hospitalization)
  Sender: FDA-Public Use
  Company Number: US-PFIZER INC-2018232801

PATIENT
  Age: 69 Year
  Sex: Male
  Weight: 147.4 kg

DRUGS (4)
  1. TIKOSYN [Suspect]
     Active Substance: DOFETILIDE
     Dosage: 500 UG, 2X/DAY
  2. LASIX [Concomitant]
     Active Substance: FUROSEMIDE
     Dosage: UNK
  3. TIKOSYN [Suspect]
     Active Substance: DOFETILIDE
     Indication: ATRIAL FIBRILLATION
     Dosage: 250 UG, 2X/DAY
     Route: 048
     Dates: start: 2015
  4. METOLAZONE. [Concomitant]
     Active Substance: METOLAZONE
     Dosage: UNK

REACTIONS (8)
  - Drug ineffective [Unknown]
  - Blood pressure decreased [Unknown]
  - Dehydration [Recovered/Resolved]
  - Heart rate abnormal [Unknown]
  - Orthostatic hypotension [Unknown]
  - Heart rate increased [Not Recovered/Not Resolved]
  - Syncope [Recovered/Resolved with Sequelae]
  - Pulse abnormal [Unknown]

NARRATIVE: CASE EVENT DATE: 201805
